FAERS Safety Report 18918070 (Version 2)
Quarter: 2021Q1

REPORT INFORMATION
  Report Type: Spontaneous
  Country: GB (occurrence: GB)
  Receive Date: 20210219
  Receipt Date: 20210315
  Transmission Date: 20210420
  Serious: Yes (Hospitalization, Disabling, Other)
  Sender: FDA-Public Use
  Company Number: GB-PFIZER INC-2021121352

PATIENT
  Age: 73 Year
  Sex: Male
  Weight: 82.3 kg

DRUGS (1)
  1. TOZINAMERAN. [Suspect]
     Active Substance: TOZINAMERAN
     Indication: COVID-19 IMMUNISATION
     Dosage: SINGLE DOSE
     Dates: start: 20210129, end: 20210129

REACTIONS (6)
  - Cerebral infarction [Unknown]
  - Ischaemic stroke [Not Recovered/Not Resolved]
  - Dysarthria [Unknown]
  - Diplopia [Unknown]
  - Brain stem stroke [Unknown]
  - Muscular weakness [Unknown]

NARRATIVE: CASE EVENT DATE: 20210129
